FAERS Safety Report 24834327 (Version 1)
Quarter: 2025Q1

REPORT INFORMATION
  Report Type: Spontaneous
  Country: US (occurrence: None)
  Receive Date: 20250110
  Receipt Date: 20250110
  Transmission Date: 20250409
  Serious: No
  Sender: FDA-CTU
  Company Number: None

PATIENT
  Age: 74 Year
  Sex: Male

DRUGS (1)
  1. ATENOLOL [Suspect]
     Active Substance: ATENOLOL

REACTIONS (1)
  - Bradycardia [None]

NARRATIVE: CASE EVENT DATE: 20241028
